FAERS Safety Report 11636135 (Version 1)
Quarter: 2015Q4

REPORT INFORMATION
  Report Type: Spontaneous
  Country: US (occurrence: US)
  Receive Date: 20151016
  Receipt Date: 20151016
  Transmission Date: 20160304
  Serious: No
  Sender: FDA-Public Use
  Company Number: US-WEST-WARD PHARMACEUTICALS CORP.-US-H14001-15-00991

PATIENT
  Sex: Female
  Weight: 57.66 kg

DRUGS (10)
  1. INFUMORPH [Suspect]
     Active Substance: MORPHINE SULFATE
     Dosage: 2.2089 MG/DAY
     Route: 037
     Dates: start: 2015
  2. CELEBREX [Concomitant]
     Active Substance: CELECOXIB
     Indication: PRODUCT USED FOR UNKNOWN INDICATION
     Route: 048
  3. GABAPENTIN. [Concomitant]
     Active Substance: GABAPENTIN
     Indication: PRODUCT USED FOR UNKNOWN INDICATION
     Route: 048
  4. LEVEMIR [Concomitant]
     Active Substance: INSULIN DETEMIR
     Indication: PRODUCT USED FOR UNKNOWN INDICATION
     Route: 058
  5. LIDOCAINE. [Concomitant]
     Active Substance: LIDOCAINE
     Indication: LOCAL ANAESTHESIA
     Route: 058
     Dates: start: 20150323
  6. INFUMORPH [Suspect]
     Active Substance: MORPHINE SULFATE
     Dosage: 2.2089 MG/DAY
     Route: 037
     Dates: start: 20150323, end: 2015
  7. SIMVASTATIN. [Concomitant]
     Active Substance: SIMVASTATIN
     Indication: PRODUCT USED FOR UNKNOWN INDICATION
     Route: 048
  8. INFUMORPH [Suspect]
     Active Substance: MORPHINE SULFATE
     Dosage: 2.2089 MG/DAY
     Route: 037
     Dates: start: 20150430
  9. INFUMORPH [Suspect]
     Active Substance: MORPHINE SULFATE
     Indication: SPINAL PAIN
     Dosage: 1.6187 MG/DAY
     Route: 037
     Dates: start: 2015, end: 2015
  10. JENTADUETO [Concomitant]
     Active Substance: LINAGLIPTIN\METFORMIN HYDROCHLORIDE
     Indication: PRODUCT USED FOR UNKNOWN INDICATION
     Dosage: 2.5 MG-500 MG
     Route: 048

REACTIONS (2)
  - Underdose [Recovered/Resolved]
  - Drug ineffective [Recovered/Resolved]
